FAERS Safety Report 18945942 (Version 2)
Quarter: 2021Q2

REPORT INFORMATION
  Report Type: Report from Study
  Country: US (occurrence: US)
  Receive Date: 20210226
  Receipt Date: 20210406
  Transmission Date: 20210717
  Serious: Yes (Hospitalization, Other)
  Sender: FDA-Public Use
  Company Number: US-REGENERON PHARMACEUTICALS, INC.-2021-27785

PATIENT

DRUGS (1)
  1. CASIRIVIMAB AND IMDEVIMAB [Suspect]
     Active Substance: CASIRIVIMAB\IMDEVIMAB
     Indication: COVID-19
     Dosage: CASIRIVIMAB AND IMDEVIMAB COMBINATION THERAPY, 2400 MG, SINGLE DOSE
     Route: 042
     Dates: start: 20210211, end: 20210211

REACTIONS (3)
  - Nausea [Recovering/Resolving]
  - COVID-19 pneumonia [Recovering/Resolving]
  - Vomiting [Recovering/Resolving]

NARRATIVE: CASE EVENT DATE: 20210213
